FAERS Safety Report 24623642 (Version 2)
Quarter: 2024Q4

REPORT INFORMATION
  Report Type: Spontaneous
  Country: FR (occurrence: FR)
  Receive Date: 20241115
  Receipt Date: 20241129
  Transmission Date: 20250115
  Serious: Yes (Death, Other)
  Sender: SANOFI AVENTIS
  Company Number: FR-SA-2024SA321132

PATIENT
  Age: 94 Year
  Sex: Male
  Weight: 82 kg

DRUGS (1)
  1. RIFAMPIN [Suspect]
     Active Substance: RIFAMPIN
     Indication: Arthritis infective
     Dosage: 4 DF, QD
     Route: 065
     Dates: start: 20240816

REACTIONS (3)
  - Death [Fatal]
  - Product prescribing issue [Unknown]
  - Incorrect dose administered [Unknown]

NARRATIVE: CASE EVENT DATE: 20240101
